FAERS Safety Report 19652416 (Version 1)
Quarter: 2021Q3

REPORT INFORMATION
  Report Type: Spontaneous
  Country: US (occurrence: US)
  Receive Date: 20210803
  Receipt Date: 20210803
  Transmission Date: 20211014
  Serious: No
  Sender: FDA-Public Use
  Company Number: US-SA-2021SA252069

PATIENT
  Sex: Female

DRUGS (6)
  1. PATANASE [Concomitant]
     Active Substance: OLOPATADINE HYDROCHLORIDE
  2. XHANCE [Concomitant]
     Active Substance: FLUTICASONE PROPIONATE
  3. ATROVENT [Concomitant]
     Active Substance: IPRATROPIUM BROMIDE
  4. ALLEGRA [Concomitant]
     Active Substance: FEXOFENADINE HYDROCHLORIDE
  5. ADVAIR HFA [Concomitant]
     Active Substance: FLUTICASONE PROPIONATE\SALMETEROL XINAFOATE
  6. DUPIXENT [Suspect]
     Active Substance: DUPILUMAB
     Dosage: 300 MG, QOW
     Dates: start: 20210504

REACTIONS (6)
  - Local reaction [Unknown]
  - Injection site reaction [Unknown]
  - Respiratory tract congestion [Unknown]
  - Skin exfoliation [Unknown]
  - Rash macular [Unknown]
  - Feeling hot [Unknown]
